FAERS Safety Report 20383979 (Version 1)
Quarter: 2022Q1

REPORT INFORMATION
  Report Type: Spontaneous
  Country: US (occurrence: US)
  Receive Date: 20220127
  Receipt Date: 20220127
  Transmission Date: 20220423
  Serious: Yes (Other)
  Sender: FDA-Public Use
  Company Number: US-AMGEN-USASP2022010020

PATIENT

DRUGS (1)
  1. BEVACIZUMAB [Suspect]
     Active Substance: BEVACIZUMAB
     Indication: Product used for unknown indication
     Dosage: UNK
     Route: 065

REACTIONS (5)
  - Postoperative wound infection [Recovering/Resolving]
  - Staphylococcus test positive [Recovering/Resolving]
  - Propionibacterium test positive [Recovering/Resolving]
  - Serratia infection [Recovering/Resolving]
  - Candida infection [Recovering/Resolving]
